FAERS Safety Report 5504924-3 (Version None)
Quarter: 2007Q4

REPORT INFORMATION
  Report Type: 
  Country: None (occurrence: None)
  Receive Date: 20071102
  Receipt Date: 20071024
  Transmission Date: 20080405
  Serious: Yes (Other)
  Sender: FDA-Public Use
  Company Number: PHRM2007FR02476

PATIENT
  Age: 34 Year
  Sex: Female

DRUGS (2)
  1. RITALIN [Suspect]
     Indication: PSYCHOMOTOR HYPERACTIVITY
     Dosage: 30 MG, QD
     Route: 048
     Dates: start: 20070301, end: 20071001
  2. DEPAKOTE [Suspect]
     Route: 048
     Dates: end: 20071001

REACTIONS (5)
  - ALOPECIA [None]
  - HYPERTENSION [None]
  - INTENTIONAL DRUG MISUSE [None]
  - VITAMIN B12 INCREASED [None]
  - WEIGHT DECREASED [None]
